FAERS Safety Report 7689766 (Version 2)
Quarter: 2018Q2

REPORT INFORMATION
  Report Type: Spontaneous
  Country: US (occurrence: US)
  Receive Date: 20101202
  Receipt Date: 20180427
  Transmission Date: 20180711
  Serious: Yes (Hospitalization)
  Sender: FDA-Public Use
  Company Number: US-TEVA-256381USA

PATIENT
  Age: 13 Month
  Weight: 12 kg

DRUGS (1)
  1. DIPHENHYDRAMINE HYDROCHLORIDE CAPSULE 50MG [Suspect]
     Active Substance: DIPHENHYDRAMINE HYDROCHLORIDE
     Indication: ACCIDENTAL OVERDOSE
     Dosage: MAXIMUM POSSIBLE INGESTION OF 50 MG/KG
     Route: 048

REACTIONS (9)
  - Generalised tonic-clonic seizure [Recovered/Resolved]
  - Carbon dioxide decreased [None]
  - Mental status changes [Unknown]
  - Supraventricular tachycardia [Recovered/Resolved]
  - Accidental overdose [Recovered/Resolved]
  - Accidental exposure to product by child [None]
  - Respiratory rate increased [None]
  - Nystagmus [Recovered/Resolved]
  - Blood glucose increased [None]
